FAERS Safety Report 12673860 (Version 1)
Quarter: 2016Q3

REPORT INFORMATION
  Report Type: Spontaneous
  Country: US (occurrence: US)
  Receive Date: 20160822
  Receipt Date: 20160822
  Transmission Date: 20161109
  Serious: Yes (Death)
  Sender: FDA-Public Use
  Company Number: US-JNJFOC-20160815013

PATIENT
  Age: 84 Year
  Sex: Male

DRUGS (3)
  1. PREDNISONE. [Concomitant]
     Active Substance: PREDNISONE
  2. ADVIL [Concomitant]
     Active Substance: IBUPROFEN
  3. IMBRUVICA [Suspect]
     Active Substance: IBRUTINIB
     Indication: OSTEOCHONDROSIS
     Route: 048
     Dates: start: 20150820

REACTIONS (4)
  - Death [Fatal]
  - Product use issue [Not Recovered/Not Resolved]
  - Incorrect dose administered [Not Recovered/Not Resolved]
  - Off label use [Not Recovered/Not Resolved]

NARRATIVE: CASE EVENT DATE: 20150820
